FAERS Safety Report 13065562 (Version 2)
Quarter: 2017Q1

REPORT INFORMATION
  Report Type: Spontaneous
  Country: US (occurrence: US)
  Receive Date: 20161227
  Receipt Date: 20170317
  Transmission Date: 20170428
  Serious: No
  Sender: FDA-Public Use
  Company Number: US-BAYER-2016-241280

PATIENT
  Sex: Male
  Weight: 82.18 kg

DRUGS (7)
  1. PROTONIX [Concomitant]
     Active Substance: PANTOPRAZOLE SODIUM
     Dosage: UNK
  2. SUTENT [Concomitant]
     Active Substance: SUNITINIB MALATE
     Dosage: UNK
  3. ALEVE [Suspect]
     Active Substance: NAPROXEN SODIUM
     Dosage: UNK
  4. BAYER ASPIRIN [Suspect]
     Active Substance: ASPIRIN
     Dosage: 1 DF, QD
  5. GEMFIBROZIL. [Concomitant]
     Active Substance: GEMFIBROZIL
     Dosage: 1 DF, QD
  6. DOXAZOSIN [Concomitant]
     Active Substance: DOXAZOSIN\DOXAZOSIN MESYLATE
     Dosage: 2 MG, QD
  7. METOPROLOL. [Concomitant]
     Active Substance: METOPROLOL
     Dosage: UNK UNK, QD

REACTIONS (1)
  - Drug hypersensitivity [Unknown]
